FAERS Safety Report 20163156 (Version 1)
Quarter: 2021Q4

REPORT INFORMATION
  Report Type: Spontaneous
  Country: US (occurrence: None)
  Receive Date: 20211209
  Receipt Date: 20211209
  Transmission Date: 20220303
  Serious: Yes (Death, Life-Threatening, Hospitalization, Other)
  Sender: FDA-Public Use
  Company Number: US-MLMSERVICE-20211122-3229576-1

PATIENT
  Age: 65 Year
  Sex: Male

DRUGS (4)
  1. HEPARIN [Suspect]
     Active Substance: HEPARIN SODIUM
     Indication: Product used for unknown indication
     Dosage: UNFRACTIONATED
     Route: 065
  2. MODERNA COVID-19 VACCINE [Suspect]
     Active Substance: ELASOMERAN
     Indication: Product used for unknown indication
     Route: 065
  3. IMMUNOGLOBULIN [Concomitant]
     Indication: Immune thrombocytopenia
     Route: 042
  4. DEXAMETHASONE [Concomitant]
     Active Substance: DEXAMETHASONE
     Indication: Immune thrombocytopenia
     Route: 042

REACTIONS (10)
  - Compartment syndrome [Fatal]
  - Haematoma muscle [Fatal]
  - Cerebral venous sinus thrombosis [Fatal]
  - Heparin-induced thrombocytopenia [Fatal]
  - Staphylococcal infection [Fatal]
  - Lactic acidosis [Fatal]
  - Deep vein thrombosis [Fatal]
  - Pulmonary embolism [Fatal]
  - Encephalopathy [Fatal]
  - Shock [Fatal]
